FAERS Safety Report 22211216 (Version 1)
Quarter: 2023Q2

REPORT INFORMATION
  Report Type: Spontaneous
  Country: US (occurrence: None)
  Receive Date: 20230413
  Receipt Date: 20230413
  Transmission Date: 20230721
  Serious: Yes (Hospitalization)
  Sender: FDA-Public Use
  Company Number: None

PATIENT
  Age: 81 Year
  Sex: Female

DRUGS (9)
  1. GLATIRAMER [Suspect]
     Active Substance: GLATIRAMER
     Indication: Multiple sclerosis
     Dosage: 40 MG/ML SUBCUTANEOUS??INJECT 1 SYRINGE UNDER THE SKIN (SUBCUTANEOUS INJECTION) MONDAY, WEDNESDAY AN
     Route: 058
     Dates: start: 20200512
  2. DALFAMPRIDINE [Concomitant]
     Active Substance: DALFAMPRIDINE
  3. SHINGRIX INJ 50/0.5ML [Concomitant]
  4. RHOPRESSA SOL 0.02% [Concomitant]
  5. MODAFINIL [Concomitant]
     Active Substance: MODAFINIL
  6. DORZOL/TIMOL SOL 22.3-6.8 [Concomitant]
  7. HYDROCHLOROT CAP 12.5MG [Concomitant]
  8. BACLOFEN [Concomitant]
     Active Substance: BACLOFEN
  9. MYRBETRIQ [Concomitant]
     Active Substance: MIRABEGRON

REACTIONS (1)
  - Condition aggravated [None]

NARRATIVE: CASE EVENT DATE: 20230412
